FAERS Safety Report 7929897-5 (Version None)
Quarter: 2011Q4

REPORT INFORMATION
  Report Type: 
  Country: None (occurrence: None)
  Receive Date: 20111121
  Receipt Date: 20111117
  Transmission Date: 20120403
  Serious: No
  Sender: FDA-Public Use
  Company Number: US-PFIZER INC-2011282304

PATIENT
  Sex: Female
  Weight: 74.83 kg

DRUGS (5)
  1. MOBIC [Concomitant]
     Indication: ARTHRITIS
     Dosage: 50 MG, UNK
  2. PRINZIDE [Concomitant]
     Indication: HYPERTENSION
     Dosage: UNK
  3. PANTOPRAZOLE [Concomitant]
     Indication: GASTROOESOPHAGEAL REFLUX DISEASE
     Dosage: 40 MG, UNK
  4. CELEBREX [Concomitant]
     Indication: ANXIETY
     Dosage: 20 MG, UNK
  5. LIPITOR [Suspect]
     Indication: BLOOD CHOLESTEROL INCREASED
     Dosage: 40 MG, 1X/DAY
     Route: 048
     Dates: start: 20111017, end: 20111101

REACTIONS (1)
  - VISION BLURRED [None]
